FAERS Safety Report 10163390 (Version 1)
Quarter: 2014Q2

REPORT INFORMATION
  Report Type: Spontaneous
  Country: US (occurrence: US)
  Receive Date: 20140509
  Receipt Date: 20140509
  Transmission Date: 20141212
  Serious: Yes (Other)
  Sender: FDA-Public Use
  Company Number: PHEH2014US009083

PATIENT
  Age: 33 Year
  Sex: Female
  Weight: 101.59 kg

DRUGS (15)
  1. GILENYA [Suspect]
     Indication: MULTIPLE SCLEROSIS
     Dosage: 0.5 MG, UNK
     Route: 048
  2. LYRICA [Suspect]
     Dosage: 150 MG, UNK
  3. ARMODAFINIL [Concomitant]
     Route: 048
  4. PRILOSEC [Concomitant]
     Dosage: 20 MG, UNK
  5. MOTRIN [Concomitant]
  6. ADVEL [Concomitant]
     Dosage: 800 MG, UNK
  7. ZOFRAN [Concomitant]
     Dosage: 4 MG, UNK
  8. VITAMIN D3 [Concomitant]
     Dosage: 50000 U, UNK
  9. NUVIGIL [Concomitant]
     Dosage: 250 MG, UNK
     Route: 048
  10. NEURONTIN [Concomitant]
     Dosage: 300 MG, UNK
  11. POLYETHYLENE GLYCOL [Concomitant]
     Dosage: 17 G, UNK
  12. TYLENOL PM [Concomitant]
     Route: 048
  13. ASCORBIC ACID [Concomitant]
     Route: 048
  14. BIOFLAVONOIDS [Concomitant]
     Route: 048
  15. ULTRAM [Concomitant]
     Dosage: 50 MG, UNK

REACTIONS (14)
  - Monocyte count increased [Unknown]
  - Depression [Unknown]
  - Blood magnesium decreased [Unknown]
  - Pain in extremity [Unknown]
  - Libido decreased [Unknown]
  - Muscular weakness [Unknown]
  - Nasal congestion [Unknown]
  - Sinus headache [Unknown]
  - Diplopia [Unknown]
  - Tinnitus [Unknown]
  - Nausea [Unknown]
  - Vomiting [Unknown]
  - Diarrhoea [Unknown]
  - Dizziness [Unknown]
